FAERS Safety Report 11718060 (Version 1)
Quarter: 2015Q4

REPORT INFORMATION
  Report Type: Spontaneous
  Country: US (occurrence: US)
  Receive Date: 20151110
  Receipt Date: 20151110
  Transmission Date: 20160304
  Serious: No
  Sender: FDA-Public Use
  Company Number: US-009507513-1511USA001721

PATIENT
  Sex: Male

DRUGS (1)
  1. VYTORIN [Suspect]
     Active Substance: EZETIMIBE\SIMVASTATIN
     Indication: BLOOD CHOLESTEROL
     Dosage: 10/20 MG 4 BLISTERS OF 7 TABS (1X28) 1 DF, QD (1 TABLET ONCE DAILY)
     Route: 048
     Dates: start: 2015, end: 20151102

REACTIONS (1)
  - Drug ineffective [Unknown]
